FAERS Safety Report 6676320-7 (Version None)
Quarter: 2010Q2

REPORT INFORMATION
  Report Type: 
  Country: None (occurrence: None)
  Receive Date: 20100412
  Receipt Date: 20100401
  Transmission Date: 20101027
  Serious: Yes (Hospitalization)
  Sender: FDA-Public Use
  Company Number: JP-ASTRAZENECA-2010SE15535

PATIENT
  Age: 89 Year
  Sex: Female

DRUGS (1)
  1. MEROPEN [Suspect]
     Route: 042
     Dates: start: 20100325, end: 20100330

REACTIONS (1)
  - HEPATIC FUNCTION ABNORMAL [None]
